FAERS Safety Report 7249697-1 (Version None)
Quarter: 2011Q1

REPORT INFORMATION
  Report Type: 
  Country: None (occurrence: None)
  Receive Date: 20110121
  Receipt Date: 20110121
  Transmission Date: 20110831
  Serious: Yes (Hospitalization)
  Sender: FDA-Public Use
  Company Number: None

PATIENT
  Sex: Female
  Weight: 78.9 kg

DRUGS (5)
  1. TAXOL [Suspect]
     Dosage: 348 MG
  2. LISINOPRIL [Concomitant]
  3. CARBOPLATIN [Suspect]
     Dosage: 460 MG
  4. LIPITOR [Concomitant]
  5. ALEVE [Concomitant]

REACTIONS (3)
  - INFUSION SITE SWELLING [None]
  - INFUSION SITE ERYTHEMA [None]
  - THROMBOSIS [None]
